FAERS Safety Report 15997244 (Version 2)
Quarter: 2019Q1

REPORT INFORMATION
  Report Type: Spontaneous
  Country: FR (occurrence: FR)
  Receive Date: 20190222
  Receipt Date: 20190222
  Transmission Date: 20190418
  Serious: Yes (Death, Life-Threatening, Other)
  Sender: FDA-Public Use
  Company Number: PHHY2019FR012547

PATIENT
  Age: 33 Year
  Sex: Female
  Weight: 48 kg

DRUGS (15)
  1. AMIKACINE MYLAN [Suspect]
     Active Substance: AMIKACIN
     Indication: PSEUDOMONAS INFECTION
     Dosage: 1200 MG, QD
     Route: 042
     Dates: start: 20181206, end: 20181209
  2. ACUPAN [Suspect]
     Active Substance: NEFOPAM HYDROCHLORIDE
     Indication: STOMATITIS
     Dosage: 80 MG, QD
     Route: 042
     Dates: start: 20181201, end: 20181212
  3. LETERMOVIR [Suspect]
     Active Substance: LETERMOVIR
     Indication: ANTIVIRAL PROPHYLAXIS
     Dosage: 240 MG, QD
     Route: 048
     Dates: start: 20181206, end: 20181213
  4. TOPALGIC (SUPROFEN) [Suspect]
     Active Substance: SUPROFEN
     Indication: STOMATITIS
     Dosage: 100 MG, TID
     Route: 042
     Dates: start: 20181204, end: 20181212
  5. ZOVIRAX [Suspect]
     Active Substance: ACYCLOVIR
     Indication: ANTIVIRAL PROPHYLAXIS
     Dosage: 250 MG, TID
     Route: 042
     Dates: start: 20181201, end: 20181210
  6. PRIMPERAN [Suspect]
     Active Substance: METOCLOPRAMIDE HYDROCHLORIDE
     Indication: PROPHYLAXIS OF NAUSEA AND VOMITING
     Dosage: 30 MG, QD (30 MILLIGRAM, QD; CONCENTRATION: 10 MG/2 ML; FORMULATION: INJECTABLE SOLUTION IN AMPOULE)
     Route: 042
     Dates: start: 20181123, end: 20181212
  7. ENDOXAN [Suspect]
     Active Substance: CYCLOPHOSPHAMIDE
     Indication: STEM CELL TRANSPLANT
     Dosage: 2400 MG, QD
     Route: 042
     Dates: start: 20181203, end: 20181204
  8. SANDIMMUN [Suspect]
     Active Substance: CYCLOSPORINE
     Indication: GRAFT VERSUS HOST DISEASE
     Dosage: 150 MG, QD CONCENTRATION: 50 MG/ML
     Route: 042
     Dates: start: 20181205, end: 20181209
  9. CICLOSPORIN [Suspect]
     Active Substance: CYCLOSPORINE
     Indication: PROPHYLAXIS AGAINST GRAFT VERSUS HOST DISEASE
     Dosage: 150 MG, QD
     Route: 042
     Dates: start: 20181205, end: 20181209
  10. ALPRAZOLAM. [Suspect]
     Active Substance: ALPRAZOLAM
     Indication: ANXIETY
     Dosage: UNK
     Route: 048
     Dates: start: 20181211, end: 20181211
  11. PIPERACILLIN AND TAZOBACTAM [Suspect]
     Active Substance: PIPERACILLIN SODIUM\TAZOBACTAM SODIUM
     Indication: FEBRILE NEUTROPENIA
     Dosage: UNK
     Route: 065
  12. CELLCEPT [Suspect]
     Active Substance: MYCOPHENOLATE MOFETIL\MYCOPHENOLATE MOFETIL HYDROCHLORIDE
     Indication: GRAFT VERSUS HOST DISEASE
     Dosage: 750 MG, TID
     Route: 048
     Dates: start: 20181205, end: 20181212
  13. VFEND [Suspect]
     Active Substance: VORICONAZOLE
     Indication: ANTIFUNGAL PROPHYLAXIS
     Dosage: 250 MG, BID
     Route: 042
     Dates: start: 20181201, end: 20181209
  14. PIPERACILLIN AND TAZOBACTAM [Suspect]
     Active Substance: PIPERACILLIN SODIUM\TAZOBACTAM SODIUM
     Indication: SEPSIS
     Dosage: 3 DF, QD (1 DOSAGE FORM, TID; CONCENTRATION: 4G/500 MG)
     Route: 042
     Dates: start: 20181201, end: 20181212
  15. CANCIDAS [Suspect]
     Active Substance: CASPOFUNGIN ACETATE
     Indication: ANTIFUNGAL PROPHYLAXIS
     Dosage: 50 MG, QD
     Route: 042
     Dates: start: 20181210, end: 20181213

REACTIONS (12)
  - Blood bilirubin abnormal [Unknown]
  - Aspartate aminotransferase abnormal [Unknown]
  - Coma [Fatal]
  - Status epilepticus [Unknown]
  - Enterocolitis [Not Recovered/Not Resolved]
  - Cardiac failure [Not Recovered/Not Resolved]
  - Alanine aminotransferase abnormal [Unknown]
  - Acute kidney injury [Not Recovered/Not Resolved]
  - Blood alkaline phosphatase abnormal [Unknown]
  - Encephalopathy [Fatal]
  - Cytokine release syndrome [Fatal]
  - Blood potassium abnormal [Unknown]

NARRATIVE: CASE EVENT DATE: 20181207
